FAERS Safety Report 11452057 (Version 5)
Quarter: 2017Q1

REPORT INFORMATION
  Report Type: Spontaneous
  Country: US (occurrence: US)
  Receive Date: 20150903
  Receipt Date: 20170317
  Transmission Date: 20170428
  Serious: Yes (Death, Other)
  Sender: FDA-Public Use
  Company Number: US-ASTELLAS-2015US031235

PATIENT
  Age: 76 Year
  Sex: Male

DRUGS (1)
  1. XTANDI [Suspect]
     Active Substance: ENZALUTAMIDE
     Indication: HORMONE-REFRACTORY PROSTATE CANCER
     Route: 048

REACTIONS (8)
  - Cough [Not Recovered/Not Resolved]
  - Chest pain [Recovered/Resolved]
  - Arthralgia [Unknown]
  - Nasopharyngitis [Not Recovered/Not Resolved]
  - Back pain [Unknown]
  - Death [Fatal]
  - Insomnia [Unknown]
  - Sleep disorder [Unknown]

NARRATIVE: CASE EVENT DATE: 201611
